FAERS Safety Report 10589581 (Version 1)
Quarter: 2014Q4

REPORT INFORMATION
  Report Type: Spontaneous
  Country: DK (occurrence: None)
  Receive Date: 20141114
  Receipt Date: 20141114
  Transmission Date: 20150529
  Serious: Yes (Other)
  Sender: FDA-Public Use
  Company Number: NSR_01666_2014

PATIENT
  Age: 52 Year
  Sex: Female

DRUGS (2)
  1. TRAMADOL (TRAMADOL) [Suspect]
     Active Substance: TRAMADOL
     Indication: ARTHRALGIA
     Route: 048
  2. NORSPAN [Suspect]
     Active Substance: BUPRENORPHINE
     Indication: ARTHRALGIA
     Dosage: 10 MG/HOUR; CHANGED EVER SEVENTH DAY
     Route: 003

REACTIONS (7)
  - Application site vesicles [None]
  - Chills [None]
  - Dermatitis contact [None]
  - Application site dermatitis [None]
  - Influenza like illness [None]
  - Pyrexia [None]
  - Hypersensitivity [None]
